FAERS Safety Report 9114960 (Version 2)
Quarter: 2013Q1

REPORT INFORMATION
  Report Type: Spontaneous
  Country: US (occurrence: US)
  Receive Date: 20130128
  Receipt Date: 20130322
  Transmission Date: 20140127
  Serious: Yes (Other)
  Sender: FDA-Public Use
  Company Number: US-ELI_LILLY_AND_COMPANY-US201301005957

PATIENT
  Sex: Male
  Weight: 114 kg

DRUGS (6)
  1. AXIRON [Suspect]
     Indication: BLOOD TESTOSTERONE DECREASED
     Dosage: 30 MG, UNKNOWN
     Dates: start: 20121108
  2. MESALAMINE [Concomitant]
     Indication: CROHN^S DISEASE
     Dosage: UNK
     Dates: start: 20110908
  3. TRAZODONE [Concomitant]
     Indication: DEPRESSION
     Dosage: 100 MG, UNKNOWN
     Dates: start: 20111116
  4. NORCO [Concomitant]
     Indication: ARTHRALGIA
     Dosage: UNK
     Dates: start: 20120514
  5. ALBUTEROL [Concomitant]
  6. OMEPRAZOLE [Concomitant]

REACTIONS (1)
  - Polycythaemia [Recovering/Resolving]
